FAERS Safety Report 11153426 (Version 1)
Quarter: 2015Q2

REPORT INFORMATION
  Report Type: Spontaneous
  Country: FI (occurrence: FI)
  Receive Date: 20150602
  Receipt Date: 20150602
  Transmission Date: 20150821
  Serious: Yes (Disabling, Other)
  Sender: FDA-Public Use
  Company Number: PHHY2015FI053747

PATIENT
  Age: 78 Year
  Sex: Male

DRUGS (5)
  1. MIRTAZAPIN [Concomitant]
     Active Substance: MIRTAZAPINE
     Indication: HYPNOTHERAPY
     Dosage: 0.5 DF (7.5 MG), AS NEEDED IN NIGHT
     Route: 065
  2. SANDOSTATIN LAR DEPOT [Suspect]
     Active Substance: OCTREOTIDE ACETATE
     Dosage: 30 MG, EVERY 4 WEEKS
     Route: 030
     Dates: start: 2013
  3. SANDOSTATIN LAR DEPOT [Suspect]
     Active Substance: OCTREOTIDE ACETATE
     Indication: NEUROENDOCRINE CARCINOMA
     Dosage: 20 MG, EVERY 4 WEEKS
     Route: 030
     Dates: start: 201301, end: 20130611
  4. BEMETSON [Concomitant]
     Indication: ERYTHEMA
     Dosage: UNK, ONCE A MONTH TO ONCE IN 3 MONTHS
     Route: 065
  5. BEMETSON [Concomitant]
     Indication: PRURITUS

REACTIONS (7)
  - Fall [Unknown]
  - Memory impairment [Unknown]
  - Gait disturbance [Not Recovered/Not Resolved]
  - Pain in extremity [Not Recovered/Not Resolved]
  - Pain [Unknown]
  - Pain in extremity [Recovered/Resolved]
  - Paraesthesia [Recovered/Resolved]

NARRATIVE: CASE EVENT DATE: 2014
